FAERS Safety Report 24457213 (Version 2)
Quarter: 2024Q4

REPORT INFORMATION
  Report Type: Report from Study
  Country: TW (occurrence: TW)
  Receive Date: 20241018
  Receipt Date: 20241024
  Transmission Date: 20250115
  Serious: Yes (Death, Hospitalization, Other)
  Sender: ABBVIE
  Company Number: TW-ABBVIE-5965928

PATIENT
  Sex: Female

DRUGS (5)
  1. RINVOQ [Suspect]
     Active Substance: UPADACITINIB
     Indication: Rheumatoid arthritis
     Dosage: FORM STRENGTH: 15 MILLIGRAM
     Route: 048
     Dates: start: 20220928, end: 20241004
  2. TURNSTYLE ANALGESIA [Concomitant]
     Indication: Rheumatoid arthritis
     Dosage: TUBE PRN
     Route: 061
  3. DIOVAN [Concomitant]
     Active Substance: VALSARTAN
     Indication: Rheumatoid arthritis
     Route: 048
  4. PREDNISOLONE ACETATE [Concomitant]
     Active Substance: PREDNISOLONE ACETATE
     Indication: Rheumatoid arthritis
     Route: 048
  5. NORVASC [Concomitant]
     Active Substance: AMLODIPINE BESYLATE
     Indication: Rheumatoid arthritis
     Route: 048

REACTIONS (11)
  - Sepsis [Fatal]
  - Dyspnoea [Unknown]
  - Speech disorder [Unknown]
  - Fall [Unknown]
  - Back pain [Unknown]
  - Spinal compression fracture [Unknown]
  - Gastric perforation [Unknown]
  - Blood pressure decreased [Unknown]
  - Altered state of consciousness [Unknown]
  - Haemoglobin decreased [Not Recovered/Not Resolved]
  - Traumatic fracture [Unknown]

NARRATIVE: CASE EVENT DATE: 20240101
